FAERS Safety Report 23769030 (Version 2)
Quarter: 2024Q2

REPORT INFORMATION
  Report Type: Spontaneous
  Country: US (occurrence: None)
  Receive Date: 20240422
  Receipt Date: 20240507
  Transmission Date: 20240716
  Serious: No
  Sender: FDA-Public Use
  Company Number: 2024A082901

PATIENT
  Sex: Female

DRUGS (1)
  1. SYMBICORT [Suspect]
     Active Substance: BUDESONIDE\FORMOTEROL FUMARATE DIHYDRATE
     Dosage: UNKNOWN UNKNOWN
     Route: 055

REACTIONS (11)
  - Food allergy [Unknown]
  - Sneezing [Unknown]
  - Wheezing [Unknown]
  - Dyspnoea [Unknown]
  - Illness [Unknown]
  - Intentional product misuse [Unknown]
  - Chest discomfort [Unknown]
  - Urticaria [Unknown]
  - Product use issue [Unknown]
  - Feeling abnormal [Unknown]
  - Drug ineffective [Unknown]
